FAERS Safety Report 10773188 (Version 1)
Quarter: 2015Q1

REPORT INFORMATION
  Report Type: Other
  Country: US (occurrence: US)
  Receive Date: 20150208
  Receipt Date: 20150208
  Transmission Date: 20150721
  Serious: No
  Sender: FDA-Public Use
  Company Number: US-ACORDA-ACO_106729_2014

PATIENT
  Age: 58 Year
  Sex: Female
  Weight: 85.71 kg

DRUGS (1)
  1. AMPYRA [Suspect]
     Active Substance: DALFAMPRIDINE
     Indication: GAIT DISTURBANCE
     Dosage: 10 MG, BID
     Route: 048
     Dates: end: 20141023

REACTIONS (4)
  - Gait disturbance [Not Recovered/Not Resolved]
  - Muscle fatigue [Not Recovered/Not Resolved]
  - Balance disorder [Unknown]
  - Fall [Unknown]

NARRATIVE: CASE EVENT DATE: 20141024
